FAERS Safety Report 12003801 (Version 1)
Quarter: 2016Q1

REPORT INFORMATION
  Report Type: Report from Study
  Country: US (occurrence: US)
  Receive Date: 20160204
  Receipt Date: 20160204
  Transmission Date: 20160526
  Serious: No
  Sender: FDA-Public Use
  Company Number: US-AMGEN-USASL2016010782

PATIENT
  Sex: Female

DRUGS (1)
  1. ENBREL [Suspect]
     Active Substance: ETANERCEPT
     Indication: RHEUMATOID ARTHRITIS
     Dosage: UNK UNK, UNK
     Route: 065

REACTIONS (7)
  - Asthenia [Unknown]
  - Neck pain [Unknown]
  - Pain in extremity [Unknown]
  - Arthralgia [Unknown]
  - Somnolence [Unknown]
  - Pain [Unknown]
  - Fatigue [Unknown]
